FAERS Safety Report 10523988 (Version 1)
Quarter: 2014Q4

REPORT INFORMATION
  Report Type: Spontaneous
  Country: US (occurrence: None)
  Receive Date: 20141015
  Receipt Date: 20141015
  Transmission Date: 20150528
  Serious: Yes (Death)
  Sender: FDA-Public Use
  Company Number: None

PATIENT
  Age: 94 Year
  Sex: Female
  Weight: 41 kg

DRUGS (16)
  1. ARICEPT [Concomitant]
     Active Substance: DONEPEZIL HYDROCHLORIDE
  2. TRAZODONE [Concomitant]
     Active Substance: TRAZODONE HYDROCHLORIDE
  3. RISPERIDONE. [Concomitant]
     Active Substance: RISPERIDONE
  4. DILTIAZEM [Concomitant]
     Active Substance: DILTIAZEM
  5. METOPROLOL [Concomitant]
     Active Substance: METOPROLOL
  6. OXYBUTYNIN [Concomitant]
     Active Substance: OXYBUTYNIN
  7. DABIGATRAN [Concomitant]
     Active Substance: DABIGATRAN
  8. HYDROCHLOROTHIAZIDE. [Concomitant]
     Active Substance: HYDROCHLOROTHIAZIDE
  9. LEVOTHYROXINE [Concomitant]
     Active Substance: LEVOTHYROXINE
  10. NAMENDA [Concomitant]
     Active Substance: MEMANTINE HYDROCHLORIDE
  11. SIMVASTATIN. [Concomitant]
     Active Substance: SIMVASTATIN
  12. TIMOLOL EYEDROPS [Concomitant]
  13. DABIGATRAN 75 MG BOEHRINGER INGELHEIM PHARMACEUTICALS [Suspect]
     Active Substance: DABIGATRAN
     Indication: ATRIAL FIBRILLATION
     Route: 048
     Dates: start: 201301, end: 20130125
  14. COZAAR [Concomitant]
     Active Substance: LOSARTAN POTASSIUM
  15. CITALOPRAM [Concomitant]
     Active Substance: CITALOPRAM HYDROBROMIDE
  16. ESTRACE INTRAVAGINAL [Concomitant]

REACTIONS (3)
  - Haematochezia [None]
  - Gastrointestinal haemorrhage [None]
  - Hypotension [None]

NARRATIVE: CASE EVENT DATE: 20130121
